FAERS Safety Report 16729030 (Version 2)
Quarter: 2019Q4

REPORT INFORMATION
  Report Type: Spontaneous
  Country: US (occurrence: US)
  Receive Date: 20190822
  Receipt Date: 20191009
  Transmission Date: 20200122
  Serious: No
  Sender: FDA-Public Use
  Company Number: US-ASTRAZENECA-2019SF13921

PATIENT
  Age: 642 Month
  Sex: Female
  Weight: 120.2 kg

DRUGS (9)
  1. BYDUREON [Suspect]
     Active Substance: EXENATIDE
     Indication: TYPE 2 DIABETES MELLITUS
     Route: 058
     Dates: start: 201902
  2. GLIMEPIRIDE. [Concomitant]
     Active Substance: GLIMEPIRIDE
  3. GABAPENTIN. [Concomitant]
     Active Substance: GABAPENTIN
  4. AMITRIPTYLINE [Concomitant]
     Active Substance: AMITRIPTYLINE
  5. VIT D [Concomitant]
     Active Substance: VITAMIN D NOS
  6. BUPROPION. [Concomitant]
     Active Substance: BUPROPION
  7. VIT B 12 [Concomitant]
     Active Substance: CYANOCOBALAMIN
  8. ROSUVASTATIN. [Suspect]
     Active Substance: ROSUVASTATIN
     Route: 048
  9. METFORMIN [Concomitant]
     Active Substance: METFORMIN HYDROCHLORIDE

REACTIONS (6)
  - Injection site reaction [Not Recovered/Not Resolved]
  - Product storage error [Unknown]
  - Injection site erythema [Not Recovered/Not Resolved]
  - Injection site pain [Unknown]
  - Injection site pruritus [Unknown]
  - Injection site mass [Not Recovered/Not Resolved]

NARRATIVE: CASE EVENT DATE: 201902
